FAERS Safety Report 21748966 (Version 1)
Quarter: 2022Q4

REPORT INFORMATION
  Report Type: Report from Study
  Country: US (occurrence: US)
  Receive Date: 20221219
  Receipt Date: 20221219
  Transmission Date: 20230112
  Serious: No
  Sender: FDA-Public Use
  Company Number: US-ABBVIE-22K-163-4420061-00

PATIENT
  Age: 37 Year
  Sex: Male

DRUGS (6)
  1. HUMIRA [Suspect]
     Active Substance: ADALIMUMAB
     Indication: Colitis ulcerative
     Dosage: CITRATE FREE
     Route: 058
  2. HUMIRA [Suspect]
     Active Substance: ADALIMUMAB
     Dosage: CITRATE FREE
     Route: 058
  3. PFIZER-BIONTECH COVID-19 VACCINE [Concomitant]
     Active Substance: TOZINAMERAN
     Indication: COVID-19 immunisation
     Dosage: TIME INTERVAL: 1 TOTAL: FIRST DOSE, FREQUENCY: ONE IN ONCE
     Route: 030
     Dates: start: 20210415, end: 20210415
  4. PFIZER-BIONTECH COVID-19 VACCINE [Concomitant]
     Active Substance: TOZINAMERAN
     Indication: COVID-19 immunisation
     Dosage: TIME INTERVAL: 1 TOTAL: SECOND DOSE, FREQUENCY: ONE IN ONCE
     Route: 030
     Dates: start: 20210507, end: 20210507
  5. PFIZER-BIONTECH COVID-19 VACCINE [Concomitant]
     Active Substance: TOZINAMERAN
     Indication: COVID-19 immunisation
     Dosage: TIME INTERVAL: 1 TOTAL: THIRD DOSE, FREQUENCY: ONE IN ONCE
     Route: 030
     Dates: start: 20211106, end: 20211106
  6. PREDNISONE [Concomitant]
     Active Substance: PREDNISONE
     Indication: Product used for unknown indication

REACTIONS (3)
  - Colitis ulcerative [Recovered/Resolved]
  - Discomfort [Unknown]
  - Colitis ulcerative [Unknown]

NARRATIVE: CASE EVENT DATE: 20221101
